FAERS Safety Report 24177376 (Version 1)
Quarter: 2024Q3

REPORT INFORMATION
  Report Type: Report from Study
  Country: US (occurrence: US)
  Receive Date: 20240806
  Receipt Date: 20240806
  Transmission Date: 20241016
  Serious: Yes (Hospitalization, Other)
  Sender: MALLINCKRODT
  Company Number: US-MALLINCKRODT-MNK202404754

PATIENT
  Age: 72 Year
  Sex: Female

DRUGS (2)
  1. CORTICOTROPIN [Suspect]
     Active Substance: CORTICOTROPIN
     Indication: Cyclitis
     Dosage: 80 UNITS
     Route: 058
     Dates: start: 20240502, end: 2024
  2. CORTICOTROPIN [Suspect]
     Active Substance: CORTICOTROPIN
     Route: 058
     Dates: start: 20240628

REACTIONS (10)
  - Immunosuppression [Unknown]
  - Wound [Not Recovered/Not Resolved]
  - Renal impairment [Unknown]
  - Skin cancer [Unknown]
  - Near death experience [Unknown]
  - Post procedural infection [Unknown]
  - Hypotension [Unknown]
  - Hepatic function abnormal [Unknown]
  - Impaired healing [Unknown]
  - Staphylococcal infection [Unknown]

NARRATIVE: CASE EVENT DATE: 20240101
